FAERS Safety Report 5774879-5 (Version None)
Quarter: 2008Q2

REPORT INFORMATION
  Report Type: 
  Country: None (occurrence: None)
  Receive Date: 20080617
  Receipt Date: 20080605
  Transmission Date: 20081010
  Serious: Yes (Death, Hospitalization, Other)
  Sender: FDA-Public Use
  Company Number: FR-ELI_LILLY_AND_COMPANY-FR200804003080

PATIENT
  Age: 71 Year
  Sex: Female
  Weight: 70 kg

DRUGS (4)
  1. GEMZAR [Suspect]
     Indication: PANCREATIC CARCINOMA
     Dosage: 1000 MG/M2, UNKNOWN
     Route: 042
     Dates: start: 20070417, end: 20070620
  2. GEMZAR [Suspect]
     Dosage: 1000 MG/M2, UNKNOWN
     Route: 042
     Dates: start: 20070816, end: 20071017
  3. ZOPHREN [Concomitant]
     Indication: NAUSEA
     Dosage: 8 MG, UNKNOWN
     Route: 042
     Dates: start: 20070417, end: 20071017
  4. PRIMPERAN /00041901/ [Concomitant]
     Indication: VOMITING
     Dosage: 10 MG, UNKNOWN
     Route: 042
     Dates: start: 20070417, end: 20070523

REACTIONS (6)
  - ASCITES [None]
  - HEPATIC STEATOSIS [None]
  - INTESTINAL OBSTRUCTION [None]
  - LIVER FUNCTION TEST ABNORMAL [None]
  - MALIGNANT NEOPLASM PROGRESSION [None]
  - SEPTIC SHOCK [None]
